FAERS Safety Report 5294515-4 (Version None)
Quarter: 2007Q2

REPORT INFORMATION
  Report Type: 
  Country: None (occurrence: None)
  Receive Date: 20070409
  Receipt Date: 20070409
  Transmission Date: 20071010
  Serious: Yes (Death, Life-Threatening, Hospitalization)
  Sender: FDA-Public Use
  Company Number: None

PATIENT
  Sex: Male
  Weight: 121 kg

DRUGS (3)
  1. TRIAMCINOLONE ACETONIDE [Suspect]
     Indication: MUSCULOSKELETAL PAIN
     Dosage: ONCE IM
     Route: 030
     Dates: start: 20070307
  2. BUPIVACAINE HCL [Suspect]
     Indication: MUSCULOSKELETAL PAIN
     Dosage: ONCE IM
     Route: 030
     Dates: start: 20070307
  3. LIDOCAINE 1% [Suspect]
     Indication: MUSCULOSKELETAL PAIN
     Dosage: ONCE IM
     Route: 030
     Dates: start: 20070307

REACTIONS (20)
  - ALANINE AMINOTRANSFERASE INCREASED [None]
  - ASPARTATE AMINOTRANSFERASE INCREASED [None]
  - BLOOD BICARBONATE DECREASED [None]
  - DIARRHOEA [None]
  - DISSEMINATED INTRAVASCULAR COAGULATION [None]
  - DIZZINESS [None]
  - DRUG INEFFECTIVE [None]
  - HYPOTENSION [None]
  - HYPOXIA [None]
  - INTERNATIONAL NORMALISED RATIO INCREASED [None]
  - METABOLIC ACIDOSIS [None]
  - MUSCULOSKELETAL PAIN [None]
  - MYOGLOBIN BLOOD INCREASED [None]
  - NAUSEA [None]
  - NEUTROPHIL PERCENTAGE INCREASED [None]
  - PLATELET COUNT DECREASED [None]
  - RENAL FAILURE [None]
  - SEPSIS [None]
  - TORSADE DE POINTES [None]
  - VENTRICULAR TACHYCARDIA [None]
